FAERS Safety Report 10034737 (Version 1)
Quarter: 2014Q1

REPORT INFORMATION
  Report Type: Spontaneous
  Country: US (occurrence: None)
  Receive Date: 20140306
  Receipt Date: 20140306
  Transmission Date: 20141002
  Serious: Yes (Hospitalization)
  Sender: FDA-Public Use
  Company Number: 163-21880-12123473

PATIENT
  Age: 67 Year
  Sex: Female
  Weight: 185 kg

DRUGS (10)
  1. REVLIMID (LENALIDOMIDE) (10 MILLIGRAM, CAPSULES) [Suspect]
     Indication: PLASMA CELL MYELOMA
     Dosage: 21 IN 21 D
     Route: 048
     Dates: start: 20081201
  2. ADVAIR DISKUS [Concomitant]
  3. ALBUTEROL SULFATE (SALBUTAMOL SULFATE) (UNKNOWN) [Concomitant]
  4. FENTANYL [Concomitant]
  5. HYDROCHLOROTHIAZIDE [Concomitant]
  6. LEXAPRO (ESCITALOPRAM OXALATE) [Concomitant]
  7. LYRICA (PREGABALIN) [Concomitant]
  8. METOPROLOL SUCCINATE [Concomitant]
  9. POTASSIUM [Concomitant]
  10. REQUIP (ROPINIROLE HYDROCHLORIDE) [Concomitant]

REACTIONS (2)
  - Pulmonary thrombosis [None]
  - Blood potassium decreased [None]
